FAERS Safety Report 9667963 (Version 8)
Quarter: 2014Q2

REPORT INFORMATION
  Report Type: Spontaneous
  Country: US (occurrence: US)
  Receive Date: 20131104
  Receipt Date: 20140624
  Transmission Date: 20141212
  Serious: Yes (Hospitalization)
  Sender: FDA-Public Use
  Company Number: US-GLAXOSMITHKLINE-A1047316A

PATIENT
  Age: 55 Year
  Sex: Female

DRUGS (12)
  1. COREG [Suspect]
     Indication: HYPERTENSION
     Dosage: 3.125MG TWICE PER DAY
     Route: 048
     Dates: start: 2006
  2. CLONIDINE [Suspect]
     Indication: PRODUCT USED FOR UNKNOWN INDICATION
     Route: 065
  3. UNKNOWN MEDICATION [Concomitant]
  4. CELLCEPT [Concomitant]
  5. FOLIC ACID [Concomitant]
  6. PREDNISONE [Concomitant]
  7. RAPAMUNE [Concomitant]
  8. VALIUM [Concomitant]
  9. VITAMIN B12 [Concomitant]
  10. OXYCONTIN [Concomitant]
  11. OXYCODONE [Concomitant]
  12. SOMA [Concomitant]

REACTIONS (20)
  - Cerebrovascular accident [Recovered/Resolved]
  - Ruptured cerebral aneurysm [Unknown]
  - Eye haemorrhage [Not Recovered/Not Resolved]
  - Blindness [Not Recovered/Not Resolved]
  - Blood pressure inadequately controlled [Recovered/Resolved]
  - Hypertension [Not Recovered/Not Resolved]
  - Visual impairment [Not Recovered/Not Resolved]
  - Glossodynia [Not Recovered/Not Resolved]
  - Oral discomfort [Recovered/Resolved]
  - Abdominal discomfort [Recovered/Resolved]
  - Drug ineffective [Unknown]
  - Drug effect decreased [Unknown]
  - Overdose [Unknown]
  - Product quality issue [Unknown]
  - Dizziness [Unknown]
  - Drug administration error [Unknown]
  - Hypoaesthesia oral [Not Recovered/Not Resolved]
  - Paraesthesia oral [Not Recovered/Not Resolved]
  - Blood pressure increased [Unknown]
  - Oral discharge [Unknown]
